FAERS Safety Report 23939554 (Version 1)
Quarter: 2024Q2

REPORT INFORMATION
  Report Type: Spontaneous
  Country: NL (occurrence: NL)
  Receive Date: 20240605
  Receipt Date: 20240605
  Transmission Date: 20240716
  Serious: Yes (Other)
  Sender: FDA-Public Use
  Company Number: NL-LRB-00976496

PATIENT
  Age: 87 Year
  Sex: Male
  Weight: 72 kg

DRUGS (1)
  1. TAMSULOSIN HYDROCHLORIDE [Suspect]
     Active Substance: TAMSULOSIN HYDROCHLORIDE
     Indication: Pollakiuria
     Dosage: UNK
     Route: 065
     Dates: start: 20240310, end: 20240501

REACTIONS (1)
  - Anal incontinence [Recovered/Resolved]
